FAERS Safety Report 10399362 (Version 2)
Quarter: 2015Q1

REPORT INFORMATION
  Report Type: Spontaneous
  Country: US (occurrence: US)
  Receive Date: 20140821
  Receipt Date: 20150327
  Transmission Date: 20150720
  Serious: Yes (Death, Hospitalization, Disabling, Other)
  Sender: FDA-Public Use
  Company Number: US-009507513-1408USA010983

PATIENT
  Sex: Female
  Weight: 96.15 kg

DRUGS (4)
  1. BYETTA [Suspect]
     Active Substance: EXENATIDE
     Dosage: 10 MICROGRAM, UNK
     Dates: start: 20060129, end: 20061207
  2. BYETTA [Suspect]
     Active Substance: EXENATIDE
     Dosage: 5 MICROGRAM, UNK
     Dates: start: 20070612, end: 20070715
  3. BYETTA [Suspect]
     Active Substance: EXENATIDE
     Dosage: UNK
     Dates: start: 20051207, end: 20070715
  4. JANUMET [Suspect]
     Active Substance: METFORMIN HYDROCHLORIDE\SITAGLIPTIN PHOSPHATE
     Indication: TYPE 2 DIABETES MELLITUS
     Dosage: 50MG/1000MG
     Route: 048
     Dates: start: 200708, end: 20080110

REACTIONS (7)
  - Explorative laparotomy [Unknown]
  - Gastroenterostomy [Unknown]
  - Pancreatic carcinoma [Not Recovered/Not Resolved]
  - Death [Fatal]
  - Small intestine adenocarcinoma [Unknown]
  - Constipation [Unknown]
  - Cholecystectomy [Unknown]

NARRATIVE: CASE EVENT DATE: 20071119
